FAERS Safety Report 21219258 (Version 1)
Quarter: 2022Q3

REPORT INFORMATION
  Report Type: Spontaneous
  Country: IN (occurrence: IN)
  Receive Date: 20220817
  Receipt Date: 20220817
  Transmission Date: 20221026
  Serious: Yes (Other)
  Sender: FDA-Public Use
  Company Number: IN-SUN PHARMACEUTICAL INDUSTRIES LTD-2022R1-349000

PATIENT
  Age: 28 Year
  Sex: Male

DRUGS (2)
  1. ALPRAZOLAM [Suspect]
     Active Substance: ALPRAZOLAM
     Indication: Product used for unknown indication
     Dosage: 50-60 TABLETS/DAY
     Route: 065
  2. TRAMADOL [Suspect]
     Active Substance: TRAMADOL
     Indication: Product used for unknown indication
     Dosage: 4-5 TABLETS/DAY
     Route: 065

REACTIONS (4)
  - Drug withdrawal convulsions [Recovering/Resolving]
  - Withdrawal catatonia [Recovering/Resolving]
  - Drug dependence [Unknown]
  - Intentional product misuse [Unknown]
